FAERS Safety Report 12566336 (Version 3)
Quarter: 2017Q1

REPORT INFORMATION
  Report Type: Spontaneous
  Country: JP (occurrence: JP)
  Receive Date: 20160718
  Receipt Date: 20170217
  Transmission Date: 20170428
  Serious: Yes (Hospitalization)
  Sender: FDA-Public Use
  Company Number: JP-IMPAX LABORATORIES, INC-2016-IPXL-00751

PATIENT
  Age: 53 Year
  Sex: Female

DRUGS (13)
  1. CARBIDOPA-LEVODOPA ER [Suspect]
     Active Substance: CARBIDOPA\LEVODOPA
     Dosage: 600 MG, UNK
     Route: 048
     Dates: start: 201405
  2. CARBIDOPA-LEVODOPA ER [Suspect]
     Active Substance: CARBIDOPA\LEVODOPA
     Dosage: 100 MG, UNK
     Route: 048
  3. PEROSPIRONE HCL [Concomitant]
     Active Substance: PEROSPIRONE HYDROCHLORIDE
     Indication: RESTLESSNESS
     Dosage: 8-16 MG
     Route: 065
  4. CARBIDOPA-LEVODOPA ER [Suspect]
     Active Substance: CARBIDOPA\LEVODOPA
     Indication: PARKINSONISM
     Dosage: 100 MG, UNK
     Route: 065
     Dates: start: 201309
  5. CARBIDOPA-LEVODOPA ER [Suspect]
     Active Substance: CARBIDOPA\LEVODOPA
     Indication: DEMENTIA WITH LEWY BODIES
     Dosage: 200-300 MG, UNK
     Route: 065
     Dates: start: 201310
  6. BIPERIDEN [Suspect]
     Active Substance: BIPERIDEN
     Dosage: 3 MG, UNK
     Route: 065
  7. BIPERIDEN [Suspect]
     Active Substance: BIPERIDEN
     Dosage: 6 MG, UNK
     Route: 065
  8. ROTIGOTINE [Suspect]
     Active Substance: ROTIGOTINE
     Indication: DEMENTIA WITH LEWY BODIES
     Dosage: UNK
     Route: 065
  9. BIPERIDEN [Suspect]
     Active Substance: BIPERIDEN
     Indication: PARKINSONISM
     Dosage: 2 MG, UNK
     Route: 065
  10. ROPINIROLE HYDROCHLORIDE. [Suspect]
     Active Substance: ROPINIROLE HYDROCHLORIDE
     Indication: PARKINSONISM
     Dosage: 6 MG, UNK
     Route: 048
  11. ROPINIROLE HYDROCHLORIDE. [Suspect]
     Active Substance: ROPINIROLE HYDROCHLORIDE
     Indication: DEMENTIA WITH LEWY BODIES
     Dosage: 1 MG, UNK
     Route: 048
     Dates: start: 201411
  12. OLANZAPINE. [Suspect]
     Active Substance: OLANZAPINE
     Indication: PARKINSONISM
     Dosage: 5 TO 10 MG
  13. TIAPRIDE HYDROCHLORIDE [Suspect]
     Active Substance: TIAPRIDE HYDROCHLORIDE
     Indication: PRODUCT USED FOR UNKNOWN INDICATION
     Dosage: 50 - 150 MG
     Route: 065

REACTIONS (13)
  - Frustration tolerance decreased [Recovered/Resolved]
  - Condition aggravated [Unknown]
  - Apnoeic attack [Recovered/Resolved]
  - Laryngeal dyspnoea [Recovered/Resolved]
  - Dyskinesia [Recovered/Resolved]
  - Dementia with Lewy bodies [Unknown]
  - Irritability [Recovered/Resolved]
  - Sexually inappropriate behaviour [Recovered/Resolved]
  - Altered state of consciousness [Recovered/Resolved]
  - Hallucination [Recovered/Resolved]
  - Drug hypersensitivity [Unknown]
  - Off label use [Unknown]
  - Oromandibular dystonia [Recovered/Resolved]

NARRATIVE: CASE EVENT DATE: 201309
